FAERS Safety Report 6031901-9 (Version None)
Quarter: 2009Q1

REPORT INFORMATION
  Report Type: 
  Country: None (occurrence: None)
  Receive Date: 20090108
  Receipt Date: 20090106
  Transmission Date: 20090719
  Serious: Yes (Hospitalization, Other)
  Sender: FDA-Public Use
  Company Number: US-PFIZER INC-2008156266

PATIENT
  Sex: Female
  Weight: 66.213 kg

DRUGS (16)
  1. BLINDED *PLACEBO [Suspect]
     Indication: OSTEOARTHRITIS
     Dosage: UNK
     Route: 048
     Dates: start: 20061218, end: 20070403
  2. BLINDED CELECOXIB [Suspect]
     Indication: OSTEOARTHRITIS
     Dosage: UNK
     Route: 048
     Dates: start: 20061218, end: 20070403
  3. IBUPROFEN TABLETS [Suspect]
     Indication: OSTEOARTHRITIS
     Dosage: UNK
     Route: 048
     Dates: start: 20061218, end: 20070403
  4. NAPROXEN [Suspect]
     Indication: OSTEOARTHRITIS
     Dosage: UNK
     Route: 048
     Dates: start: 20061218, end: 20070403
  5. WARFARIN [Concomitant]
     Dosage: 5.0 MG, QD, 4XW
     Route: 048
     Dates: start: 20071023, end: 20080920
  6. WARFARIN [Concomitant]
     Dosage: 2.0 MG, QD, 3XW
     Route: 048
     Dates: start: 20071118, end: 20080920
  7. NEXIUM [Concomitant]
     Dosage: 40 MG, 1X/DAY
     Route: 048
     Dates: start: 20070406
  8. CLONIDINE HYDROCHLORIDE [Concomitant]
     Dosage: 0.3 MG, 1X/DAY
     Route: 048
     Dates: start: 20010601
  9. FUROSEMIDE [Concomitant]
     Dosage: 40 MG, 1X/DAY
     Route: 048
     Dates: start: 20010601
  10. TOPROL-XL [Concomitant]
     Dosage: 200 MG, 1X/DAY
     Route: 048
     Dates: start: 20010601
  11. MULTI-VITAMINS [Concomitant]
     Dosage: 1 TAB, QD
     Route: 048
     Dates: start: 19781013
  12. IRON [Concomitant]
     Dosage: 27 MG, 2X/DAY
     Route: 048
     Dates: start: 20051001
  13. AVAPRO [Concomitant]
     Dosage: 300 MG, 1X/DAY
     Route: 048
     Dates: start: 20070130
  14. ASCORBIC ACID [Concomitant]
     Dosage: 500 MG, 1X/DAY
     Route: 048
     Dates: start: 20070126
  15. VITAMIN B-12 [Concomitant]
     Dosage: 1 MCG, 1XM
     Route: 030
     Dates: start: 20060601
  16. ZOCOR [Concomitant]
     Dosage: 40 MG, 1X/DAY
     Route: 048
     Dates: start: 20070615

REACTIONS (1)
  - LOWER GASTROINTESTINAL HAEMORRHAGE [None]
